FAERS Safety Report 7412336-0 (Version None)
Quarter: 2011Q2

REPORT INFORMATION
  Report Type: 
  Country: None (occurrence: None)
  Receive Date: 20110413
  Receipt Date: 20110329
  Transmission Date: 20111010
  Serious: Yes (Death)
  Sender: FDA-Public Use
  Company Number: US-CELGENEUS-163-21880-10032683

PATIENT
  Sex: Male

DRUGS (2)
  1. DEXAMETHASONE [Suspect]
     Route: 065
  2. REVLIMID [Suspect]
     Indication: MULTIPLE MYELOMA
     Dosage: 25 MILLIGRAM
     Route: 048
     Dates: start: 20100201

REACTIONS (6)
  - VISION BLURRED [None]
  - PNEUMONIA [None]
  - HAEMOGLOBIN ABNORMAL [None]
  - NAUSEA [None]
  - BLOOD GLUCOSE INCREASED [None]
  - DIARRHOEA [None]
